FAERS Safety Report 12285300 (Version 1)
Quarter: 2016Q2

REPORT INFORMATION
  Report Type: Report from Study
  Country: CN (occurrence: CN)
  Receive Date: 20160420
  Receipt Date: 20160420
  Transmission Date: 20160815
  Serious: Yes (Hospitalization, Other)
  Sender: FDA-Public Use
  Company Number: PHHY2014CN122661

PATIENT
  Age: 69 Year
  Sex: Female
  Weight: 60 kg

DRUGS (1)
  1. EXFORGE [Suspect]
     Active Substance: AMLODIPINE BESYLATE\VALSARTAN
     Indication: HYPERTENSION
     Dosage: (80MG VALSARTAN AND 5MG AMLODIPINE)
     Route: 048
     Dates: start: 201305

REACTIONS (6)
  - Lacunar infarction [Unknown]
  - Cerebral arteriosclerosis [Unknown]
  - Hypertension [Not Recovered/Not Resolved]
  - Dizziness [Recovering/Resolving]
  - Cerebral atrophy [Unknown]
  - Albumin urine present [Recovered/Resolved]

NARRATIVE: CASE EVENT DATE: 20140830
